FAERS Safety Report 15277428 (Version 1)
Quarter: 2018Q4

REPORT INFORMATION
  Report Type: Spontaneous
  Country: IT (occurrence: IT)
  Receive Date: 20180814
  Receipt Date: 20180814
  Transmission Date: 20190204
  Serious: Yes (Other)
  Sender: FDA-Public Use
  Company Number: PHHY2018IT015917

PATIENT
  Age: 40 Year
  Sex: Male

DRUGS (8)
  1. AMPICILLIN [Suspect]
     Active Substance: AMPICILLIN
     Indication: PRODUCT USED FOR UNKNOWN INDICATION
     Route: 065
  2. DURACEF (CEFADROXIL) [Suspect]
     Active Substance: CEFADROXIL
     Dosage: 20 MG/ML, UNK (0.9% SODIUM CHLORIDE)
     Route: 023
  3. DURACEF (CEFADROXIL) [Suspect]
     Active Substance: CEFADROXIL
     Dosage: 5 %, UNK
     Route: 061
  4. KEFORAL [Suspect]
     Active Substance: CEPHALEXIN
     Indication: PRODUCT USED FOR UNKNOWN INDICATION
     Dosage: 5 %, UNK
     Route: 061
  5. DURACEF (CEFADROXIL) [Suspect]
     Active Substance: CEFADROXIL
     Indication: PRODUCT USED FOR UNKNOWN INDICATION
     Dosage: 5 %, UNK
     Route: 023
  6. AMOXICILLIN+CLAVULANIC ACID [Suspect]
     Active Substance: AMOXICILLIN\CLAVULANIC ACID
     Indication: PRODUCT USED FOR UNKNOWN INDICATION
     Route: 065
  7. PANACEF [Suspect]
     Active Substance: CEFACLOR
     Dosage: 2 MG/ML, UNK (IN 0.9% SODIUM CHLORIDE)
     Route: 023
  8. PANACEF [Suspect]
     Active Substance: CEFACLOR
     Indication: PRODUCT USED FOR UNKNOWN INDICATION
     Dosage: 5 %, UNK
     Route: 061

REACTIONS (4)
  - Oedema [Unknown]
  - Type IV hypersensitivity reaction [Unknown]
  - Erythema [Unknown]
  - Therapeutic product cross-reactivity [Unknown]
